FAERS Safety Report 15562042 (Version 1)
Quarter: 2018Q4

REPORT INFORMATION
  Report Type: Spontaneous
  Country: US (occurrence: US)
  Receive Date: 20181029
  Receipt Date: 20181029
  Transmission Date: 20190205
  Serious: No
  Sender: FDA-Public Use
  Company Number: US-SA-2018SA296809

PATIENT
  Age: 13 Week
  Sex: Male

DRUGS (1)
  1. LOVENOX [Suspect]
     Active Substance: ENOXAPARIN SODIUM
     Indication: THROMBOSIS
     Dosage: 9 MG, BID
     Route: 065
     Dates: start: 20181001

REACTIONS (1)
  - Product availability issue [Unknown]

NARRATIVE: CASE EVENT DATE: 20181024
